FAERS Safety Report 9819789 (Version 1)
Quarter: 2014Q1

REPORT INFORMATION
  Report Type: Spontaneous
  Country: JP (occurrence: JP)
  Receive Date: 20140116
  Receipt Date: 20140116
  Transmission Date: 20141002
  Serious: Yes (Death, Other)
  Sender: FDA-Public Use
  Company Number: JP-ROCHE-1333423

PATIENT
  Age: 72 Year
  Sex: Female
  Weight: 45 kg

DRUGS (8)
  1. AVASTIN [Suspect]
     Indication: BREAST CANCER METASTATIC
     Route: 041
     Dates: start: 20120413, end: 20120619
  2. PACLITAXEL [Suspect]
     Indication: BREAST CANCER METASTATIC
     Route: 041
     Dates: start: 20120413, end: 20120619
  3. OMEPRAL [Concomitant]
     Indication: PROPHYLAXIS
     Route: 042
     Dates: start: 20120413, end: 20120619
  4. GASTER (JAPAN) [Concomitant]
     Indication: PROPHYLAXIS
     Route: 042
     Dates: start: 20120413, end: 20120619
  5. DECADRON [Concomitant]
     Indication: PROPHYLAXIS
     Route: 042
     Dates: start: 20120413, end: 20120619
  6. OXYCONTIN [Concomitant]
     Indication: CANCER PAIN
     Route: 048
     Dates: start: 20120417, end: 20120513
  7. NOVAMIN (JAPAN) [Concomitant]
     Indication: NAUSEA
     Route: 048
     Dates: start: 20120419, end: 20120424
  8. MAGMITT [Concomitant]
     Indication: CONSTIPATION
     Route: 048
     Dates: start: 20120419, end: 20120509

REACTIONS (2)
  - Neutrophil count decreased [Recovered/Resolved]
  - Breast cancer metastatic [Fatal]
